FAERS Safety Report 5611996-4 (Version None)
Quarter: 2008Q1

REPORT INFORMATION
  Report Type: 
  Country: None (occurrence: None)
  Receive Date: 20080111
  Receipt Date: 20070618
  Transmission Date: 20080703
  Serious: Yes (Hospitalization, Other)
  Sender: FDA-Public Use
  Company Number: HQWYE106514JUL04

PATIENT
  Age: 58 Year
  Sex: Female

DRUGS (3)
  1. PREMPRO [Suspect]
     Dates: start: 19960101, end: 19990701
  2. PREMARIN [Suspect]
     Dates: start: 19960101, end: 19990701
  3. PROVERA [Suspect]
     Dates: start: 19960101, end: 19990701

REACTIONS (1)
  - DEEP VEIN THROMBOSIS [None]
